FAERS Safety Report 8018491-6 (Version None)
Quarter: 2012Q1

REPORT INFORMATION
  Report Type: 
  Country: None (occurrence: None)
  Receive Date: 20120103
  Receipt Date: 20111222
  Transmission Date: 20120608
  Serious: Yes (Hospitalization, Disabling)
  Sender: FDA-Public Use
  Company Number: US-BAYER-2011-039204

PATIENT
  Age: 50 Year
  Sex: Female
  Weight: 70 kg

DRUGS (5)
  1. MULTI-VITAMINS [Concomitant]
     Indication: SUPPLEMENTATION THERAPY
     Dosage: UNK
     Dates: start: 20050913, end: 20051003
  2. YASMIN [Suspect]
     Indication: DYSFUNCTIONAL UTERINE BLEEDING
     Dosage: UNK
     Dates: start: 20050607, end: 20051003
  3. IBUPROFEN [Concomitant]
     Dosage: UNK UNK, PRN
     Dates: start: 20050713
  4. PREMARIN [Concomitant]
     Dosage: UNK
     Dates: start: 20050601
  5. EXCEDRIN (MIGRAINE) [Concomitant]
     Dosage: UNK
     Dates: start: 20051005

REACTIONS (11)
  - DEEP VEIN THROMBOSIS [None]
  - EMOTIONAL DISTRESS [None]
  - ANXIETY [None]
  - ERYTHEMA [None]
  - OEDEMA PERIPHERAL [None]
  - PULMONARY EMBOLISM [None]
  - PAIN [None]
  - PAIN IN EXTREMITY [None]
  - GENERAL PHYSICAL HEALTH DETERIORATION [None]
  - MUSCULOSKELETAL DISCOMFORT [None]
  - DYSPNOEA [None]
